FAERS Safety Report 6945929-5 (Version None)
Quarter: 2010Q3

REPORT INFORMATION
  Report Type: 
  Country: None (occurrence: None)
  Receive Date: 20100824
  Receipt Date: 20100811
  Transmission Date: 20110219
  Serious: Yes (Death, Hospitalization)
  Sender: FDA-Public Use
  Company Number: 2010SA013191

PATIENT
  Age: 72 Year
  Sex: Male

DRUGS (6)
  1. WARFARIN SODIUM [Suspect]
     Indication: PULMONARY EMBOLISM
     Dates: start: 20091228, end: 20100709
  2. ENOXAPARIN SODIUM [Suspect]
     Indication: PULMONARY EMBOLISM
     Dosage: 1 MILLIGRAM(S)/KILOGRAM;TWICE A DAY SC
     Route: 058
     Dates: start: 20091228, end: 20100102
  3. SIMVASTATIN [Concomitant]
  4. METOPROLOL TARTRATE [Concomitant]
  5. AMLODIPINE [Concomitant]
  6. NEBIVOLOL HCL [Concomitant]

REACTIONS (16)
  - ARTERIOSCLEROSIS OBLITERANS [None]
  - ASTHENIA [None]
  - BENIGN PROSTATIC HYPERPLASIA [None]
  - BRONCHITIS CHRONIC [None]
  - CARDIAC ARREST [None]
  - CARDIAC FAILURE [None]
  - CHEST PAIN [None]
  - CORONARY ARTERY DISEASE [None]
  - CYSTITIS NONINFECTIVE [None]
  - DIZZINESS [None]
  - GASTRITIS EROSIVE [None]
  - HEADACHE [None]
  - IRON DEFICIENCY ANAEMIA [None]
  - MESENTERIC ARTERY THROMBOSIS [None]
  - RENAL COLIC [None]
  - UPPER GASTROINTESTINAL HAEMORRHAGE [None]
